FAERS Safety Report 6903476-0 (Version None)
Quarter: 2010Q3

REPORT INFORMATION
  Report Type: 
  Country: None (occurrence: None)
  Receive Date: 20100803
  Receipt Date: 20081008
  Transmission Date: 20110219
  Serious: Yes (Other)
  Sender: FDA-Public Use
  Company Number: US-PFIZER INC-2008084892

PATIENT
  Age: 35 Year
  Sex: Male

DRUGS (3)
  1. LYRICA [Suspect]
  2. LAMICTAL [Concomitant]
  3. TOPAMAX [Concomitant]

REACTIONS (1)
  - RASH [None]
